FAERS Safety Report 21594548 (Version 2)
Quarter: 2024Q2

REPORT INFORMATION
  Report Type: Report from Study
  Country: CA (occurrence: CA)
  Receive Date: 20221115
  Receipt Date: 20240402
  Transmission Date: 20240716
  Serious: Yes (Death, Hospitalization, Other)
  Sender: FDA-Public Use
  Company Number: CA-ABBVIE-4198639

PATIENT
  Sex: Female

DRUGS (1)
  1. RINVOQ [Suspect]
     Active Substance: UPADACITINIB
     Indication: Dermatitis atopic
     Route: 048
     Dates: start: 20220522, end: 202211

REACTIONS (14)
  - Death [Fatal]
  - COVID-19 [Recovering/Resolving]
  - Fall [Unknown]
  - Asthenia [Unknown]
  - Hypophagia [Unknown]
  - Urinary incontinence [Unknown]
  - Red blood cell count decreased [Unknown]
  - Blood sodium decreased [Unknown]
  - Hospitalisation [Unknown]
  - Nasopharyngitis [Recovering/Resolving]
  - Lymphoma [Unknown]
  - Myocardial infarction [Unknown]
  - Lymphadenopathy [Unknown]
  - Unevaluable event [Unknown]

NARRATIVE: CASE EVENT DATE: 20220101
